FAERS Safety Report 12839240 (Version 1)
Quarter: 2016Q4

REPORT INFORMATION
  Report Type: Spontaneous
  Country: US (occurrence: US)
  Receive Date: 20161010
  Receipt Date: 20161010
  Transmission Date: 20170207
  Serious: No
  Sender: FDA-Public Use
  Company Number: None

PATIENT
  Age: 69 Year
  Sex: Female

DRUGS (14)
  1. ALLEGRA [Concomitant]
     Active Substance: FEXOFENADINE HYDROCHLORIDE
  2. HARVONI [Suspect]
     Active Substance: LEDIPASVIR\SOFOSBUVIR
     Indication: HEPATITIS C
     Route: 048
  3. BENTYL [Concomitant]
     Active Substance: DICYCLOMINE HYDROCHLORIDE
  4. LACTULOSE. [Concomitant]
     Active Substance: LACTULOSE
  5. ESTRACE [Concomitant]
     Active Substance: ESTRADIOL
  6. CLARITIN [Concomitant]
     Active Substance: LORATADINE
  7. ASPIRIN. [Concomitant]
     Active Substance: ASPIRIN
  8. MELATONIN [Concomitant]
     Active Substance: MELATONIN
  9. PEPCID [Concomitant]
     Active Substance: FAMOTIDINE
  10. ACIPHEX [Concomitant]
     Active Substance: RABEPRAZOLE SODIUM
  11. ZOFRAN [Concomitant]
     Active Substance: ONDANSETRON HYDROCHLORIDE
  12. ANUSOL-HC [Concomitant]
  13. MOBIC [Concomitant]
     Active Substance: MELOXICAM
  14. NORFLEX [Concomitant]
     Active Substance: ORPHENADRINE CITRATE

REACTIONS (2)
  - Hot flush [None]
  - Nausea [None]

NARRATIVE: CASE EVENT DATE: 20161009
